FAERS Safety Report 8391254-8 (Version None)
Quarter: 2012Q2

REPORT INFORMATION
  Report Type: 
  Country: None (occurrence: None)
  Receive Date: 20120529
  Receipt Date: 20120323
  Transmission Date: 20120825
  Serious: Yes (Hospitalization)
  Sender: FDA-Public Use
  Company Number: CA-NOVOPROD-348122

PATIENT
  Age: 60 Year
  Sex: Female

DRUGS (2)
  1. VICTOZA [Suspect]
     Dosage: 1.2 MG, QD
     Route: 058
  2. VICTOZA [Suspect]
     Indication: PRODUCT USED FOR UNKNOWN INDICATION
     Dosage: 0.6 MG, QD
     Route: 058

REACTIONS (2)
  - BLOOD CREATININE DECREASED [None]
  - FATIGUE [None]
